FAERS Safety Report 12732003 (Version 1)
Quarter: 2016Q3

REPORT INFORMATION
  Report Type: Spontaneous
  Country: US (occurrence: US)
  Receive Date: 20160909
  Receipt Date: 20160909
  Transmission Date: 20161109
  Serious: Yes (Life-Threatening, Hospitalization, Other)
  Sender: FDA-Public Use
  Company Number: None

PATIENT
  Age: 49 Year
  Sex: Female
  Weight: 76.7 kg

DRUGS (1)
  1. ETOPOSIDE. [Suspect]
     Active Substance: ETOPOSIDE
     Indication: NON-SMALL CELL LUNG CANCER
     Dosage: 90 MG MILLIGRAM(S) DAILY INTRAVENOUS (NOT OTHERWISE SPECIFIED)
     Route: 042
     Dates: start: 20160907, end: 20160909

REACTIONS (5)
  - Respiratory distress [None]
  - Wheezing [None]
  - Depressed level of consciousness [None]
  - Therapy non-responder [None]
  - Infusion related reaction [None]

NARRATIVE: CASE EVENT DATE: 20160908
